FAERS Safety Report 7055306-7 (Version None)
Quarter: 2010Q4

REPORT INFORMATION
  Report Type: 
  Country: None (occurrence: None)
  Receive Date: 20101020
  Receipt Date: 20101020
  Transmission Date: 20110411
  Serious: Yes (Other)
  Sender: FDA-Public Use
  Company Number: None

PATIENT
  Sex: Female
  Weight: 58.9676 kg

DRUGS (1)
  1. AMBIEN [Suspect]
     Indication: MIGRAINE
     Dosage: DAILY
     Dates: start: 20030101, end: 20040101

REACTIONS (2)
  - AMNESIA [None]
  - DISORIENTATION [None]
